FAERS Safety Report 8385967-1 (Version None)
Quarter: 2012Q2

REPORT INFORMATION
  Report Type: 
  Country: None (occurrence: None)
  Receive Date: 20120525
  Receipt Date: 20120515
  Transmission Date: 20120825
  Serious: Yes (Hospitalization, Other)
  Sender: FDA-Public Use
  Company Number: CA-JNJFOC-20120513296

PATIENT
  Sex: Female

DRUGS (2)
  1. REMICADE [Suspect]
     Indication: CROHN'S DISEASE
     Dosage: FIRST INFUSION
     Route: 042
     Dates: start: 20120502
  2. IMURAN [Concomitant]
     Route: 048

REACTIONS (2)
  - ILEAL STENOSIS [None]
  - INTESTINAL PERFORATION [None]
